FAERS Safety Report 15241221 (Version 1)
Quarter: 2018Q3

REPORT INFORMATION
  Report Type: Spontaneous
  Country: US (occurrence: US)
  Receive Date: 20180711
  Receipt Date: 20180711
  Transmission Date: 20181010
  Serious: No
  Sender: FDA-Public Use
  Company Number: None

PATIENT
  Age: 66 Year
  Sex: Female
  Weight: 89 kg

DRUGS (1)
  1. ESTRADIOL TRANSDERMAL SYSTEM [Suspect]
     Active Substance: ESTRADIOL
     Indication: MENOPAUSAL SYMPTOMS
     Route: 062
     Dates: start: 20180425, end: 20180710

REACTIONS (5)
  - Hot flush [None]
  - Product substitution issue [None]
  - Irritability [None]
  - Device adhesion issue [None]
  - Incorrect drug administration duration [None]

NARRATIVE: CASE EVENT DATE: 20180430
